FAERS Safety Report 12774937 (Version 1)
Quarter: 2016Q3

REPORT INFORMATION
  Report Type: Spontaneous
  Country: US (occurrence: US)
  Receive Date: 20160921
  Receipt Date: 20160921
  Transmission Date: 20161109
  Serious: No
  Sender: FDA-Public Use
  Company Number: None

PATIENT
  Age: 53 Year
  Sex: Female

DRUGS (1)
  1. COPAXONE [Suspect]
     Active Substance: GLATIRAMER ACETATE
     Indication: MULTIPLE SCLEROSIS
     Dosage: 40MG TIW UNDER THE SKIN
     Dates: start: 20160215

REACTIONS (8)
  - Injection site erythema [None]
  - Depression [None]
  - Joint swelling [None]
  - Injection site swelling [None]
  - Fatigue [None]
  - Skin disorder [None]
  - Pain in extremity [None]
  - Joint stiffness [None]

NARRATIVE: CASE EVENT DATE: 201602
